FAERS Safety Report 8388318-1 (Version None)
Quarter: 2012Q2

REPORT INFORMATION
  Report Type: 
  Country: None (occurrence: None)
  Receive Date: 20120525
  Receipt Date: 20120516
  Transmission Date: 20120825
  Serious: Yes (Hospitalization, Other)
  Sender: FDA-Public Use
  Company Number: JP-TEVA-2011002004

PATIENT
  Age: 62 Year
  Sex: Male
  Weight: 68.75 kg

DRUGS (8)
  1. SULFAMETHOXAZOLE AND TRIMETHOPRIM [Concomitant]
  2. ITRACONAZOLE [Concomitant]
  3. TREANDA [Suspect]
     Indication: B-CELL LYMPHOMA
     Route: 042
     Dates: start: 20110221
  4. CARBOCISTEINE [Concomitant]
     Indication: BRONCHITIS CHRONIC
  5. ENTECAVIR HYDRATE [Concomitant]
  6. OMEPRAZOLE [Concomitant]
  7. NAFTOPIDIL [Concomitant]
  8. AMBROXOL HYDROCHLORIDE [Concomitant]
     Indication: BRONCHITIS CHRONIC

REACTIONS (6)
  - NEUTROPHIL COUNT DECREASED [None]
  - HERPES ZOSTER [None]
  - LYMPHOCYTE COUNT DECREASED [None]
  - BRONCHITIS CHRONIC [None]
  - C-REACTIVE PROTEIN INCREASED [None]
  - WHITE BLOOD CELL COUNT DECREASED [None]
